FAERS Safety Report 5495484-4 (Version None)
Quarter: 2007Q4

REPORT INFORMATION
  Report Type: 
  Country: None (occurrence: None)
  Receive Date: 20071023
  Receipt Date: 20071009
  Transmission Date: 20080405
  Serious: Yes (Hospitalization)
  Sender: FDA-Public Use
  Company Number: 2007S1009700

PATIENT
  Age: 65 Year
  Sex: Male
  Weight: 61.2356 kg

DRUGS (4)
  1. FENTANYL TRANSDERMAL SYSTEM [Suspect]
     Indication: METASTASES TO LIVER
     Dosage: 50 UG/HR;EVERY 3 DAYS;TRANSDERMAL
     Route: 062
     Dates: start: 20070801, end: 20070801
  2. FENTANYL TRANSDERMAL SYSTEM [Suspect]
     Indication: METASTASES TO LIVER
     Dosage: 25 UG/HR;EVERY 3 DAYS;TRANSDERMAL
     Route: 062
     Dates: start: 20070801
  3. NEXIUM [Concomitant]
  4. REGLAN [Concomitant]

REACTIONS (7)
  - ANOREXIA [None]
  - CONDITION AGGRAVATED [None]
  - DEAFNESS [None]
  - DYSKINESIA [None]
  - TREMOR [None]
  - VISION BLURRED [None]
  - VOMITING [None]
